FAERS Safety Report 11232150 (Version 1)
Quarter: 2015Q2

REPORT INFORMATION
  Report Type: Spontaneous
  Country: US (occurrence: None)
  Receive Date: 20150630
  Receipt Date: 20150630
  Transmission Date: 20150821
  Serious: No
  Sender: FDA-Public Use
  Company Number: None

PATIENT

DRUGS (2)
  1. PRIVIGEN [Suspect]
     Active Substance: HUMAN IMMUNOGLOBULIN G
     Route: 042
  2. ALBUMIN HUMAN [Suspect]
     Active Substance: ALBUMIN (HUMAN)
     Route: 042

REACTIONS (1)
  - Circumstance or information capable of leading to medication error [None]
